FAERS Safety Report 6870355-7 (Version None)
Quarter: 2010Q3

REPORT INFORMATION
  Report Type: 
  Country: None (occurrence: None)
  Receive Date: 20100723
  Receipt Date: 20100716
  Transmission Date: 20110219
  Serious: No
  Sender: FDA-Public Use
  Company Number: US-BIOGENIDEC-2010BI024424

PATIENT
  Age: 68 Year
  Sex: Female

DRUGS (1)
  1. TYSABRI [Suspect]
     Indication: MULTIPLE SCLEROSIS
     Route: 042
     Dates: start: 20091007

REACTIONS (6)
  - CONTUSION [None]
  - FATIGUE [None]
  - INFUSION SITE HAEMATOMA [None]
  - MOBILITY DECREASED [None]
  - PAIN [None]
  - WEIGHT INCREASED [None]
